FAERS Safety Report 6258736-6 (Version None)
Quarter: 2009Q3

REPORT INFORMATION
  Report Type: 
  Country: None (occurrence: None)
  Receive Date: 20090707
  Receipt Date: 20090626
  Transmission Date: 20100115
  Serious: Yes (Hospitalization)
  Sender: FDA-Public Use
  Company Number: B0579470A

PATIENT
  Sex: Female

DRUGS (3)
  1. CLAVAMOX [Suspect]
     Indication: OTITIS MEDIA
     Dosage: 1.2G TWICE PER DAY
     Route: 048
     Dates: start: 20090605, end: 20090608
  2. MEIACT [Suspect]
     Indication: OTITIS MEDIA
     Dosage: .5G THREE TIMES PER DAY
     Route: 048
     Dates: start: 20090608, end: 20090612
  3. DIAPP [Suspect]
     Indication: FEBRILE CONVULSION
     Dosage: 6MG TWICE PER DAY
     Route: 054
     Dates: start: 20090608, end: 20090614

REACTIONS (4)
  - BODY TEMPERATURE INCREASED [None]
  - ERYTHEMA MULTIFORME [None]
  - EYELID OEDEMA [None]
  - RASH PRURITIC [None]
